FAERS Safety Report 19471553 (Version 1)
Quarter: 2021Q2

REPORT INFORMATION
  Report Type: Spontaneous
  Country: US (occurrence: US)
  Receive Date: 20210629
  Receipt Date: 20210629
  Transmission Date: 20210717
  Serious: Yes (Hospitalization)
  Sender: FDA-Public Use
  Company Number: None

PATIENT
  Age: 33 Year
  Sex: Female
  Weight: 82.1 kg

DRUGS (1)
  1. DIPRIVAN [Suspect]
     Active Substance: PROPOFOL
     Dosage: ?          OTHER DOSE:75MG/90MG/50MG;OTHER FREQUENCY:3 DOSES;OTHER ROUTE:IVP?

REACTIONS (5)
  - Tremor [None]
  - Dystonia [None]
  - Muscle spasms [None]
  - Infusion related reaction [None]
  - Heart rate increased [None]

NARRATIVE: CASE EVENT DATE: 20210617
